FAERS Safety Report 18467826 (Version 2)
Quarter: 2020Q4

REPORT INFORMATION
  Report Type: Spontaneous
  Country: AU (occurrence: AU)
  Receive Date: 20201105
  Receipt Date: 20201114
  Transmission Date: 20210114
  Serious: Yes (Other)
  Sender: FDA-Public Use
  Company Number: AU-GENERIC HEALTH PTY. LTD.-2020-08315

PATIENT
  Age: 17 Year
  Sex: Male

DRUGS (6)
  1. VITAMIN D [COLECALCIFEROL] [Concomitant]
     Active Substance: CHOLECALCIFEROL
     Indication: VITAMIN D DEFICIENCY
     Dosage: 2000 INTERNATIONAL UNIT, IN THE MORNING
     Route: 065
  2. FLUTICASONE. [Concomitant]
     Active Substance: FLUTICASONE
     Indication: ASTHMA
     Dosage: 250 MICROGRAM, BID
     Route: 055
  3. CLONIDINE. [Concomitant]
     Active Substance: CLONIDINE
     Indication: AGITATION
     Dosage: 200 MICROGRAM, AT NIGHT
     Route: 065
  4. SALBUTAMOL [Concomitant]
     Active Substance: ALBUTEROL
     Indication: ASTHMA
     Dosage: UNK UNK, PRN, METERED DOSE INHALER; AS NEEDED
     Route: 055
  5. QUETIAPINE TABLETS [Suspect]
     Active Substance: QUETIAPINE
     Indication: PRODUCT USED FOR UNKNOWN INDICATION
     Dosage: UNK
     Route: 045
  6. METFORMIN [Concomitant]
     Active Substance: METFORMIN HYDROCHLORIDE
     Indication: OBESITY
     Dosage: 1 GRAM, BID
     Route: 065

REACTIONS (6)
  - Intentional product use issue [Unknown]
  - Wrong technique in product usage process [Unknown]
  - Toxicity to various agents [Unknown]
  - Drug abuse [Unknown]
  - Intentional product misuse [Unknown]
  - Neutropenia [Recovered/Resolved]

NARRATIVE: CASE EVENT DATE: 20160125
